FAERS Safety Report 7594532-5 (Version None)
Quarter: 2011Q2

REPORT INFORMATION
  Report Type: 
  Country: None (occurrence: None)
  Receive Date: 20110628
  Receipt Date: 20110622
  Transmission Date: 20111010
  Serious: Yes (Hospitalization)
  Sender: FDA-Public Use
  Company Number: ACO_22642_2011

PATIENT
  Age: 62 Year
  Sex: Female

DRUGS (2)
  1. REBIF [Suspect]
     Indication: MULTIPLE SCLEROSIS
     Dosage: 44 UG 3 IN ONE WEEK, SUBCUTANEOUS
     Route: 058
     Dates: start: 20080110
  2. AMPYRA [Suspect]
     Indication: GAIT DISTURBANCE
     Dosage: 10MG, Q 12HRS
     Dates: start: 20100918, end: 20100901

REACTIONS (9)
  - PROGRESSIVE MULTIPLE SCLEROSIS [None]
  - INSOMNIA [None]
  - PAIN IN EXTREMITY [None]
  - INTERVERTEBRAL DISC PROTRUSION [None]
  - NERVE COMPRESSION [None]
  - INAPPROPRIATE SCHEDULE OF DRUG ADMINISTRATION [None]
  - ARTHRALGIA [None]
  - MUSCLE SPASMS [None]
  - MUSCLE TWITCHING [None]
